FAERS Safety Report 18144792 (Version 1)
Quarter: 2020Q3

REPORT INFORMATION
  Report Type: Spontaneous
  Country: US (occurrence: US)
  Receive Date: 20200812
  Receipt Date: 20200812
  Transmission Date: 20201103
  Serious: No
  Sender: FDA-Public Use
  Company Number: None

PATIENT
  Age: 48 Year
  Sex: Male

DRUGS (1)
  1. 99MTC SODIUM PERTECHNETATE VIAL [Suspect]
     Active Substance: TECHNETIUM TC-99M SODIUM PERTECHNETATE
     Indication: GASTROINTESTINAL SCAN
     Dates: start: 20200620, end: 20200620

REACTIONS (2)
  - Product dispensing error [None]
  - Computerised tomogram abnormal [None]

NARRATIVE: CASE EVENT DATE: 20200620
